FAERS Safety Report 14754541 (Version 2)
Quarter: 2019Q1

REPORT INFORMATION
  Report Type: Spontaneous
  Country: US (occurrence: US)
  Receive Date: 20180413
  Receipt Date: 20190308
  Transmission Date: 20190417
  Serious: Yes (Hospitalization, Other)
  Sender: FDA-Public Use
  Company Number: US-ASTRAZENECA-2018SE43701

PATIENT
  Age: 19442 Day
  Sex: Male

DRUGS (17)
  1. ASPIRIN. [Concomitant]
     Active Substance: ASPIRIN
  2. PRAVASTATIN. [Concomitant]
     Active Substance: PRAVASTATIN
  3. LIPITOR [Concomitant]
     Active Substance: ATORVASTATIN CALCIUM
  4. GLIPIZIDE. [Concomitant]
     Active Substance: GLIPIZIDE
  5. PEPCID [Concomitant]
     Active Substance: FAMOTIDINE
  6. KOMBIGLYZE XR [Suspect]
     Active Substance: METFORMIN HYDROCHLORIDE\SAXAGLIPTIN HYDROCHLORIDE
     Indication: DIABETES MELLITUS
     Dosage: 5-500 MG DAILY
     Route: 048
     Dates: start: 20110603, end: 20161224
  7. AMLODIPINE BESYLATE. [Concomitant]
     Active Substance: AMLODIPINE BESYLATE
  8. RESTORIL [Concomitant]
     Active Substance: TEMAZEPAM
  9. CARVEDILOL. [Concomitant]
     Active Substance: CARVEDILOL
  10. FUROSEMIDE. [Concomitant]
     Active Substance: FUROSEMIDE
  11. LASIX [Concomitant]
     Active Substance: FUROSEMIDE
  12. HEPARIN [Concomitant]
     Active Substance: HEPARIN SODIUM
  13. TYLENOL [Concomitant]
     Active Substance: ACETAMINOPHEN
  14. LISINOPRIL. [Concomitant]
     Active Substance: LISINOPRIL
  15. LANTUS [Concomitant]
     Active Substance: INSULIN GLARGINE
  16. DEXTROSE. [Concomitant]
     Active Substance: DEXTROSE
  17. ONGLYZA [Suspect]
     Active Substance: SAXAGLIPTIN HYDROCHLORIDE
     Route: 048
     Dates: start: 20110603, end: 20161224

REACTIONS (2)
  - Cardiac failure congestive [Unknown]
  - Cardiac failure acute [Unknown]

NARRATIVE: CASE EVENT DATE: 20160701
